FAERS Safety Report 6089714-8 (Version None)
Quarter: 2009Q1

REPORT INFORMATION
  Report Type: 
  Country: None (occurrence: None)
  Receive Date: 20090220
  Receipt Date: 20090220
  Transmission Date: 20090719
  Serious: No
  Sender: FDA-Public Use
  Company Number: None

PATIENT
  Age: 36 Year
  Sex: Female
  Weight: 72.5755 kg

DRUGS (1)
  1. LEVAQUIN [Suspect]
     Indication: SINUSITIS
     Dosage: 1 TABLET ONCE DAILY PO
     Route: 048
     Dates: start: 20090217, end: 20090217

REACTIONS (10)
  - AGITATION [None]
  - CENTRAL NERVOUS SYSTEM STIMULATION [None]
  - CHILLS [None]
  - DIZZINESS [None]
  - HOT FLUSH [None]
  - INSOMNIA [None]
  - NAUSEA [None]
  - NIGHTMARE [None]
  - PANIC REACTION [None]
  - RESTLESSNESS [None]
